FAERS Safety Report 6718697-X (Version None)
Quarter: 2010Q2

REPORT INFORMATION
  Report Type: 
  Country: None (occurrence: None)
  Receive Date: 20100507
  Receipt Date: 20100423
  Transmission Date: 20101027
  Serious: Yes (Hospitalization)
  Sender: FDA-Public Use
  Company Number: A-NJ2010-35299

PATIENT
  Age: 62 Year
  Sex: Female
  Weight: 85.3 kg

DRUGS (1)
  1. TRACLEER [Suspect]
     Indication: PULMONARY ARTERIAL HYPERTENSION
     Dosage: 125 MG, BID, ORAL
     Route: 048
     Dates: start: 20080501

REACTIONS (2)
  - PNEUMONIA [None]
  - STAPHYLOCOCCAL OSTEOMYELITIS [None]
